FAERS Safety Report 9360881 (Version 2)
Quarter: 2013Q2

REPORT INFORMATION
  Report Type: Spontaneous
  Country: FR (occurrence: FR)
  Receive Date: 20130621
  Receipt Date: 20130627
  Transmission Date: 20140414
  Serious: Yes (Hospitalization)
  Sender: FDA-Public Use
  Company Number: FR-PFIZER INC-2013183406

PATIENT
  Age: 91 Year
  Sex: Female

DRUGS (12)
  1. EUPANTOL [Suspect]
     Dosage: 1 DF, 2X/DAY
     Route: 048
     Dates: start: 20130226, end: 20130305
  2. BACTRIM FORTE [Suspect]
     Indication: URINARY TRACT INFECTION
     Dosage: 160/800 MG DAILY
     Route: 048
     Dates: start: 20130225, end: 20130304
  3. AERIUS [Suspect]
     Dosage: 5 MG DAILY
     Route: 048
     Dates: start: 20130225, end: 20130302
  4. SELOKEN [Concomitant]
     Dosage: 200 MG DAILY
     Route: 048
  5. KARDEGIC [Concomitant]
     Dosage: 75 MG, 1X/DAY
     Route: 048
  6. TEMESTA [Concomitant]
     Dosage: 0.5 MG, 1X/DAY
     Route: 048
  7. SEROPLEX [Concomitant]
     Dosage: 5 MG, 1X/DAY
     Route: 048
  8. LASILIX [Concomitant]
     Dosage: 60 MG, 1X/DAY
     Route: 048
  9. HEMIGOXINE NATIVELLE [Concomitant]
     Dosage: 0.0625 MG (0.125 MG,1 IN 48 HR)
     Route: 048
     Dates: end: 20130227
  10. ECONAZOLE [Concomitant]
     Dosage: 1 PERCENT POWDER
  11. IPRATROPIUM [Concomitant]
     Dosage: UNK
     Route: 055
  12. TERBUTALINE [Concomitant]
     Dosage: UNK
     Route: 055

REACTIONS (1)
  - Renal failure acute [Recovered/Resolved]
